FAERS Safety Report 14962272 (Version 2)
Quarter: 2018Q3

REPORT INFORMATION
  Report Type: Spontaneous
  Country: US (occurrence: US)
  Receive Date: 20180601
  Receipt Date: 20180808
  Transmission Date: 20181010
  Serious: Yes (Other)
  Sender: FDA-Public Use
  Company Number: PHEH2018US021054

PATIENT
  Sex: Female

DRUGS (4)
  1. LENVATINIB [Suspect]
     Active Substance: LENVATINIB
     Dosage: 18 MG, QD
     Route: 048
     Dates: end: 201805
  2. LENVATINIB [Suspect]
     Active Substance: LENVATINIB
     Indication: RENAL CELL CARCINOMA
     Dosage: 10 MG, QD
     Route: 048
     Dates: start: 20170726
  3. AFINITOR [Suspect]
     Active Substance: EVEROLIMUS
     Indication: RENAL CANCER
     Dosage: 2.5 MG, QD
     Route: 048
     Dates: start: 201802, end: 2018
  4. LENVATINIB [Suspect]
     Active Substance: LENVATINIB
     Indication: RENAL CANCER
     Dosage: 18 MG, QD
     Route: 048
     Dates: start: 20170123

REACTIONS (12)
  - Cardiac failure congestive [Recovered/Resolved]
  - Malaise [Recovered/Resolved]
  - Fluid retention [Unknown]
  - Blood creatinine increased [Unknown]
  - Rash [Unknown]
  - Synovial cyst [Recovered/Resolved]
  - Diarrhoea [Recovered/Resolved]
  - Hernia [Unknown]
  - Blood pressure increased [Not Recovered/Not Resolved]
  - Protein urine present [Unknown]
  - Hepatic lesion [Unknown]
  - Oedema peripheral [Unknown]

NARRATIVE: CASE EVENT DATE: 2017
